FAERS Safety Report 8399212-4 (Version None)
Quarter: 2012Q2

REPORT INFORMATION
  Report Type: 
  Country: None (occurrence: None)
  Receive Date: 20120323
  Receipt Date: 20110418
  Transmission Date: 20120825
  Serious: Yes (Hospitalization, Other)
  Sender: FDA-Public Use
  Company Number: 163-21880-11010736

PATIENT
  Age: 74 Year
  Sex: Female

DRUGS (1)
  1. REVLIMID [Suspect]
     Indication: MULTIPLE MYELOMA
     Dosage: 25 MG, DAILY FOR 21 DAYS ON, THEN 7 DAYS OFF, PO
     Dates: start: 20101107, end: 20101109

REACTIONS (7)
  - CONFUSIONAL STATE [None]
  - PYREXIA [None]
  - HYPOXIA [None]
  - SEPSIS [None]
  - HYPOTENSION [None]
  - PNEUMONIA [None]
  - DEHYDRATION [None]
